FAERS Safety Report 9362788 (Version 1)
Quarter: 2013Q2

REPORT INFORMATION
  Report Type: Spontaneous
  Country: US (occurrence: US)
  Receive Date: 20130624
  Receipt Date: 20130624
  Transmission Date: 20140414
  Serious: No
  Sender: FDA-Public Use
  Company Number: US-009507513-1306USA002600

PATIENT
  Age: 78 Year
  Sex: Male

DRUGS (2)
  1. COSOPT PF [Suspect]
     Indication: INTRAOCULAR PRESSURE INCREASED
     Dosage: 2%/0.5%, ONCE DROP IN AFFECTED EYE, TWICE DAILY
     Route: 047
  2. ZIOPTAN [Concomitant]
     Dosage: 0.015MG/ML, ONE DROP EACH EYE, IN THE EVENING
     Route: 047

REACTIONS (3)
  - Headache [Unknown]
  - Dizziness [Unknown]
  - Fatigue [Unknown]
